FAERS Safety Report 24313487 (Version 1)
Quarter: 2024Q3

REPORT INFORMATION
  Report Type: Spontaneous
  Country: FR (occurrence: FR)
  Receive Date: 20240912
  Receipt Date: 20240912
  Transmission Date: 20241017
  Serious: Yes (Hospitalization)
  Sender: MYLAN
  Company Number: None

PATIENT
  Age: 49 Year
  Sex: Male

DRUGS (1)
  1. CLOZAPINE [Suspect]
     Active Substance: CLOZAPINE
     Indication: Hallucination
     Dosage: 400 MILLIGRAM, QD (4 TABS OF 100 MG (I.E. 400 MG) INSTEAD OF 4 TABS OF 25 MG (I.E. 100 MG))
     Route: 048
     Dates: start: 20240720, end: 20240721

REACTIONS (2)
  - Confusional state [Recovered/Resolved]
  - Incorrect dose administered [Recovered/Resolved]

NARRATIVE: CASE EVENT DATE: 20240720
